FAERS Safety Report 23337765 (Version 12)
Quarter: 2025Q2

REPORT INFORMATION
  Report Type: Report from Study
  Country: CA (occurrence: CA)
  Receive Date: 20231226
  Receipt Date: 20250422
  Transmission Date: 20250717
  Serious: Yes (Hospitalization, Other)
  Sender: TAKEDA
  Company Number: CA-JNJFOC-20231220556

PATIENT
  Age: 45 Year
  Sex: Male

DRUGS (16)
  1. BORTEZOMIB [Suspect]
     Active Substance: BORTEZOMIB
     Indication: Plasma cell myeloma
  2. DEXAMETHASONE [Suspect]
     Active Substance: DEXAMETHASONE
     Indication: Plasma cell myeloma
  3. DARZALEX [Suspect]
     Active Substance: DARATUMUMAB
     Indication: Plasma cell myeloma
     Dosage: 16 MILLIGRAM/KILOGRAM
     Dates: start: 20231206
  4. DARZALEX [Suspect]
     Active Substance: DARATUMUMAB
     Dosage: 1800 MILLIGRAM, 4/WEEK
     Dates: start: 20231215
  5. DARZALEX [Suspect]
     Active Substance: DARATUMUMAB
     Indication: Plasma cell myeloma
     Dosage: 1800 MILLIGRAM, 1/WEEK
     Dates: start: 20231215
  6. DARZALEX [Suspect]
     Active Substance: DARATUMUMAB
     Dosage: 1800 MILLIGRAM, 4/WEEK
     Dates: start: 20231215
  7. DARZALEX [Suspect]
     Active Substance: DARATUMUMAB
     Dosage: 1800 MILLIGRAM, 1/WEEK
     Dates: start: 20240125
  8. DARZALEX [Suspect]
     Active Substance: DARATUMUMAB
  9. LENALIDOMIDE [Suspect]
     Active Substance: LENALIDOMIDE
     Indication: Plasma cell myeloma
  10. ACETAMINOPHEN [Concomitant]
     Active Substance: ACETAMINOPHEN
  11. RUPATADINE [Concomitant]
     Active Substance: RUPATADINE
  12. MONTELUKAST [Concomitant]
     Active Substance: MONTELUKAST
  13. ASPIRIN [Concomitant]
     Active Substance: ASPIRIN
  14. VALACYCLOVIR [Concomitant]
     Active Substance: VALACYCLOVIR HYDROCHLORIDE
  15. ZOMETA [Concomitant]
     Active Substance: ZOLEDRONIC ACID
  16. APIXABAN [Concomitant]
     Active Substance: APIXABAN

REACTIONS (5)
  - Infusion related reaction [Unknown]
  - Stem cell transplant [Recovered/Resolved]
  - Malaise [Unknown]
  - Intentional product use issue [Unknown]
  - Product dose omission issue [Unknown]

NARRATIVE: CASE EVENT DATE: 20241217
